FAERS Safety Report 20629925 (Version 2)
Quarter: 2022Q2

REPORT INFORMATION
  Report Type: Report from Study
  Country: CZ (occurrence: CZ)
  Receive Date: 20220324
  Receipt Date: 20220414
  Transmission Date: 20220721
  Serious: Yes (Other)
  Sender: FDA-Public Use
  Company Number: CZ-NOVARTISPH-PHHY2018CZ151369

PATIENT

DRUGS (3)
  1. DABRAFENIB [Suspect]
     Active Substance: DABRAFENIB
     Indication: Metastatic malignant melanoma
     Dosage: UNK
     Route: 065
     Dates: start: 20181002
  2. TRAMETINIB [Suspect]
     Active Substance: TRAMETINIB
     Indication: Metastatic malignant melanoma
     Dosage: UNK
     Route: 065
     Dates: start: 20181002
  3. TRAMETINIB [Suspect]
     Active Substance: TRAMETINIB
     Dosage: UNK, DOSE OF TMT DECREASED
     Route: 065

REACTIONS (11)
  - Ocular surface disease [Recovered/Resolved]
  - Retinal pigment epitheliopathy [Unknown]
  - Paronychia [Not Recovered/Not Resolved]
  - Eczema [Unknown]
  - Blood lactate dehydrogenase increased [Not Recovered/Not Resolved]
  - Intraocular pressure increased [Unknown]
  - Rash [Not Recovered/Not Resolved]
  - Blood alkaline phosphatase increased [Not Recovered/Not Resolved]
  - Aspartate aminotransferase increased [Recovered/Resolved]
  - Alanine aminotransferase increased [Recovered/Resolved]
  - Mitral valve prolapse [Not Recovered/Not Resolved]

NARRATIVE: CASE EVENT DATE: 20181016
